FAERS Safety Report 6163279-4 (Version None)
Quarter: 2009Q2

REPORT INFORMATION
  Report Type: 
  Country: None (occurrence: None)
  Receive Date: 20090420
  Receipt Date: 20090420
  Transmission Date: 20091009
  Serious: No
  Sender: FDA-Public Use
  Company Number: None

PATIENT
  Age: 62 Year
  Sex: Male
  Weight: 84.7 kg

DRUGS (1)
  1. VANCOMYCIN HCL [Suspect]
     Indication: SURGERY
     Dosage: 1000 MG BID IV
     Route: 042
     Dates: start: 20081106, end: 20081205

REACTIONS (1)
  - CLOSTRIDIAL INFECTION [None]
